FAERS Safety Report 6573974-0 (Version None)
Quarter: 2010Q1

REPORT INFORMATION
  Report Type: 
  Country: None (occurrence: None)
  Receive Date: 20100208
  Receipt Date: 20100128
  Transmission Date: 20100710
  Serious: Yes (Hospitalization)
  Sender: FDA-Public Use
  Company Number: JP-ASTRAZENECA-2010SE04074

PATIENT
  Age: 86 Year
  Sex: Female
  Weight: 46 kg

DRUGS (9)
  1. ECARD COMBINATION HD [Suspect]
     Indication: HYPERTENSION
     Route: 048
     Dates: start: 20091126, end: 20100114
  2. GASTER [Concomitant]
     Indication: GASTRIC ULCER
     Route: 048
     Dates: end: 20100113
  3. LASIX [Concomitant]
     Indication: CARDIAC FAILURE
     Route: 048
     Dates: end: 20100113
  4. AMLODIN OD [Concomitant]
     Indication: HYPERTENSION
     Route: 048
     Dates: start: 20090901, end: 20100113
  5. FRANDOL TAPE [Concomitant]
     Indication: ANGINA PECTORIS
     Route: 062
     Dates: start: 20090612
  6. EPADEL S900 [Concomitant]
     Indication: HYPERLIPIDAEMIA
     Route: 048
     Dates: start: 20090617
  7. ALESION [Concomitant]
     Indication: ECZEMA
     Route: 048
     Dates: start: 20090624
  8. AMOBAN [Concomitant]
     Indication: INSOMNIA
     Route: 048
     Dates: start: 20090624
  9. PLETAL [Concomitant]
     Indication: ANGINA PECTORIS
     Route: 048
     Dates: start: 20091009, end: 20100113

REACTIONS (1)
  - ACUTE CORONARY SYNDROME [None]
